FAERS Safety Report 4622266-5 (Version None)
Quarter: 2005Q1

REPORT INFORMATION
  Report Type: 
  Country: None (occurrence: None)
  Receive Date: 20050324
  Receipt Date: 20050324
  Transmission Date: 20050727
  Serious: No
  Sender: FDA-Public Use
  Company Number: None

PATIENT
  Weight: 0.98 kg

DRUGS (1)
  1. EMLA [Suspect]
     Indication: LOCAL ANAESTHESIA
     Dosage: X1 TOPICAL
     Route: 061
     Dates: start: 20050312, end: 20050312

REACTIONS (3)
  - APPLICATION SITE DERMATITIS [None]
  - PUNCTURE SITE HAEMORRHAGE [None]
  - SKIN DISCOLOURATION [None]
